FAERS Safety Report 20000948 (Version 2)
Quarter: 2021Q4

REPORT INFORMATION
  Report Type: Spontaneous
  Country: US (occurrence: US)
  Receive Date: 20211027
  Receipt Date: 20211130
  Transmission Date: 20220303
  Serious: Yes (Other)
  Sender: FDA-Public Use
  Company Number: US-SA-SAC20211021001141

PATIENT
  Age: 63 Year
  Sex: Male

DRUGS (1)
  1. DUPIXENT [Suspect]
     Active Substance: DUPILUMAB
     Indication: Dermatitis atopic
     Dosage: 300 MG, QOW
     Route: 058
     Dates: start: 20210326

REACTIONS (8)
  - Pulmonary embolism [Recovering/Resolving]
  - Pneumonia [Recovering/Resolving]
  - Amputee [Recovering/Resolving]
  - Lethargy [Recovering/Resolving]
  - Hypopnoea [Recovering/Resolving]
  - Pleural effusion [Recovering/Resolving]
  - Urinary tract infection [Recovering/Resolving]
  - Stent malfunction [Unknown]

NARRATIVE: CASE EVENT DATE: 20210101
